FAERS Safety Report 7249873-8 (Version None)
Quarter: 2011Q1

REPORT INFORMATION
  Report Type: 
  Country: None (occurrence: None)
  Receive Date: 20110128
  Receipt Date: 20100617
  Transmission Date: 20110831
  Serious: No
  Sender: FDA-Public Use
  Company Number: A0871294A

PATIENT
  Age: 65 Year
  Sex: Female

DRUGS (3)
  1. CRESTOR [Concomitant]
     Dosage: 2.5MG PER DAY
  2. WELLBUTRIN XL [Suspect]
     Dosage: 150MG PER DAY
     Route: 048
     Dates: start: 20100423
  3. LISINOPRIL [Concomitant]
     Dosage: 25MG PER DAY

REACTIONS (2)
  - AGITATION [None]
  - MUSCLE SPASMS [None]
